FAERS Safety Report 9615644 (Version 1)
Quarter: 2013Q4

REPORT INFORMATION
  Report Type: Spontaneous
  Country: US (occurrence: None)
  Receive Date: 20131010
  Receipt Date: 20131010
  Transmission Date: 20140711
  Serious: Yes (Death)
  Sender: FDA-Public Use
  Company Number: None

PATIENT
  Age: 84 Year
  Sex: Female
  Weight: 65.77 kg

DRUGS (1)
  1. ASPIRIN (E.C.) [Suspect]
     Indication: DRUG THERAPY
     Dosage: 1 PILL ONCE DAILY TAKEN BY MOUTH
     Route: 048
     Dates: start: 20130213, end: 20130817

REACTIONS (3)
  - Fatigue [None]
  - Decreased appetite [None]
  - Product quality issue [None]
